FAERS Safety Report 7806961 (Version 2)
Quarter: 2013Q2

REPORT INFORMATION
  Report Type: Report from Study
  Country: MX (occurrence: MX)
  Receive Date: 20110210
  Receipt Date: 20130530
  Transmission Date: 20140414
  Serious: Yes (Death, Other)
  Sender: FDA-Public Use
  Company Number: PHHY2011MX07094

PATIENT
  Age: 27 Year
  Sex: Male

DRUGS (1)
  1. GENTEAL GEL [Suspect]
     Indication: DRY EYE
     Dosage: 1 DRP, QH
     Dates: start: 200301

REACTIONS (2)
  - Lung disorder [Fatal]
  - Pneumonia [Fatal]
